FAERS Safety Report 8936968 (Version 1)
Quarter: 2012Q4

REPORT INFORMATION
  Report Type: 
  Country: BR (occurrence: BR)
  Receive Date: 20121130
  Receipt Date: 20121130
  Transmission Date: 20130627
  Serious: Yes (Other)
  Sender: FDA-Public Use
  Company Number: BR-ABBOTT-12P-020-1001380-00

PATIENT
  Age: 16 Year
  Sex: Female
  Weight: 56 kg

DRUGS (2)
  1. DEPAKENE [Suspect]
     Indication: EPILEPSY
     Route: 048
  2. DEPAKENE [Suspect]
     Indication: EPILEPSY
     Dosage: 30ml daily, 250mg/5mL,a.m.,after lunch,at PM
     Route: 048
     Dates: start: 201210, end: 201210

REACTIONS (6)
  - Withdrawal syndrome [Recovering/Resolving]
  - Epilepsy [Recovering/Resolving]
  - Dyspnoea [Recovering/Resolving]
  - Excessive eye blinking [Recovering/Resolving]
  - Unevaluable event [Recovering/Resolving]
  - Feeling abnormal [Recovering/Resolving]
